FAERS Safety Report 8954041 (Version 2)
Quarter: 2013Q1

REPORT INFORMATION
  Report Type: Spontaneous
  Country: US (occurrence: US)
  Receive Date: 20121207
  Receipt Date: 20130118
  Transmission Date: 20140127
  Serious: Yes (Hospitalization)
  Sender: FDA-Public Use
  Company Number: US-FRI-1000040861

PATIENT
  Age: 36 Year
  Sex: Female
  Weight: 83.9 kg

DRUGS (4)
  1. VIIBRYD [Suspect]
     Indication: DEPRESSION
     Dosage: 10 MG
     Route: 048
     Dates: start: 20121116, end: 20121122
  2. VIIBRYD [Suspect]
     Indication: DEPRESSION
     Dosage: 20 MG
     Route: 048
     Dates: start: 20121123, end: 20121125
  3. NABUMETONE [Concomitant]
     Indication: ARTHRALGIA
     Dosage: 2000 MG
  4. FLEXERIL [Concomitant]
     Dosage: 10 MG

REACTIONS (1)
  - Grand mal convulsion [Recovered/Resolved]
